FAERS Safety Report 13232175 (Version 3)
Quarter: 2017Q1

REPORT INFORMATION
  Report Type: Spontaneous
  Country: PT (occurrence: PT)
  Receive Date: 20170214
  Receipt Date: 20170307
  Transmission Date: 20170428
  Serious: Yes (Hospitalization, Disabling)
  Sender: FDA-Public Use
  Company Number: PT-ELI_LILLY_AND_COMPANY-PT201702005299

PATIENT
  Age: 62 Year
  Sex: Female
  Weight: 72 kg

DRUGS (4)
  1. ERBITUX [Suspect]
     Active Substance: CETUXIMAB
     Indication: COLORECTAL CANCER METASTATIC
     Dosage: 850 MG, 2/M
     Route: 042
     Dates: start: 20161122, end: 20170105
  2. 5-FU                               /00098801/ [Concomitant]
     Active Substance: FLUOROURACIL
     Indication: COLORECTAL CANCER METASTATIC
     Dosage: UNK UNK, UNKNOWN
     Route: 065
     Dates: start: 20161122, end: 20170105
  3. OXALIPLATIN. [Concomitant]
     Active Substance: OXALIPLATIN
     Indication: COLORECTAL CANCER METASTATIC
     Dosage: 150 MG, 2/M
     Route: 042
     Dates: start: 20161122, end: 20170105
  4. FOLINIC ACID [Concomitant]
     Active Substance: LEUCOVORIN
     Indication: COLORECTAL CANCER METASTATIC
     Dosage: UNK UNK, UNKNOWN
     Route: 065
     Dates: start: 20161122, end: 20170105

REACTIONS (3)
  - Deep vein thrombosis [Recovering/Resolving]
  - Skin toxicity [Unknown]
  - Off label use [Unknown]

NARRATIVE: CASE EVENT DATE: 20161122
